FAERS Safety Report 9185937 (Version 1)
Quarter: 2013Q1

REPORT INFORMATION
  Report Type: Spontaneous
  Country: US (occurrence: None)
  Receive Date: 20130321
  Receipt Date: 20130321
  Transmission Date: 20140127
  Serious: Yes (Other)
  Sender: FDA-Public Use
  Company Number: 1642756

PATIENT
  Sex: 0

DRUGS (3)
  1. FUROSEMIDE [Suspect]
     Indication: PRODUCT USED FOR UNKNOWN INDICATION
  2. HEPARIN SODIUM [Suspect]
  3. VANCOMYCIN HYDROCHLORIDE [Suspect]

REACTIONS (2)
  - Myocarditis [None]
  - Type IV hypersensitivity reaction [None]
